FAERS Safety Report 11764159 (Version 1)
Quarter: 2015Q4

REPORT INFORMATION
  Report Type: Spontaneous
  Country: US (occurrence: US)
  Receive Date: 20151120
  Receipt Date: 20151120
  Transmission Date: 20160304
  Serious: No
  Sender: FDA-Public Use
  Company Number: US-ELI_LILLY_AND_COMPANY-US201303005639

PATIENT
  Age: 64 Year
  Sex: Female

DRUGS (9)
  1. LISINOPRIL. [Concomitant]
     Active Substance: LISINOPRIL
  2. VITAMIN D [Concomitant]
     Active Substance: CHOLECALCIFEROL
     Dosage: 5000 IU, UNK
  3. DIVALPROEX [Concomitant]
     Active Substance: DIVALPROEX SODIUM
  4. PRAVASTATIN [Concomitant]
     Active Substance: PRAVASTATIN\PRAVASTATIN SODIUM
  5. FORTEO [Suspect]
     Active Substance: TERIPARATIDE
     Indication: OSTEOPOROSIS
     Dosage: UNK, QD
     Dates: start: 201303
  6. MAG OXIDE [Concomitant]
     Active Substance: MAGNESIUM OXIDE
     Dosage: 400 MG, UNK
  7. METFORMIN [Concomitant]
     Active Substance: METFORMIN HYDROCHLORIDE
     Dosage: UNK, BID
  8. DORZOLAMIDE [Concomitant]
     Active Substance: DORZOLAMIDE
  9. LIDODERM [Concomitant]
     Active Substance: LIDOCAINE

REACTIONS (10)
  - Arthralgia [Not Recovered/Not Resolved]
  - Fear [Unknown]
  - Weight decreased [Unknown]
  - Diarrhoea [Unknown]
  - Nausea [Recovered/Resolved]
  - Accidental overdose [Unknown]
  - Injection site streaking [Unknown]
  - Gait disturbance [Unknown]
  - Hyperhidrosis [Unknown]
  - Constipation [Unknown]

NARRATIVE: CASE EVENT DATE: 201303
